FAERS Safety Report 4902414-X (Version None)
Quarter: 2006Q1

REPORT INFORMATION
  Report Type: 
  Country: None (occurrence: None)
  Receive Date: 20060203
  Receipt Date: 20060203
  Transmission Date: 20060701
  Serious: Yes (Hospitalization)
  Sender: FDA-Public Use
  Company Number: None

PATIENT
  Sex: Female
  Weight: 127 kg

DRUGS (4)
  1. FLUOROURACIL [Suspect]
     Indication: COLON CANCER
     Dosage: 6300 MG
     Route: 040
     Dates: end: 20060110
  2. LEUCOVORIN CALCIUM [Suspect]
     Dosage: 900 MG
     Route: 042
     Dates: end: 20060110
  3. ELOXATIN [Suspect]
     Dosage: 190 MG
     Route: 042
     Dates: end: 20060110
  4. COUMADIN [Concomitant]

REACTIONS (12)
  - ABDOMINAL PAIN [None]
  - CATHETER RELATED COMPLICATION [None]
  - DUODENAL ULCER [None]
  - EROSIVE DUODENITIS [None]
  - GASTROINTESTINAL HAEMORRHAGE [None]
  - HEART RATE INCREASED [None]
  - INTERNATIONAL NORMALISED RATIO INCREASED [None]
  - JUGULAR VEIN THROMBOSIS [None]
  - NECK PAIN [None]
  - RESPIRATORY RATE INCREASED [None]
  - SWELLING FACE [None]
  - WHITE BLOOD CELL COUNT INCREASED [None]
